FAERS Safety Report 12079614 (Version 1)
Quarter: 2016Q1

REPORT INFORMATION
  Report Type: Spontaneous
  Country: US (occurrence: None)
  Receive Date: 20160212
  Receipt Date: 20160212
  Transmission Date: 20160526
  Serious: Yes (Other)
  Sender: FDA-Public Use
  Company Number: None

PATIENT
  Age: 35 Year
  Sex: Female
  Weight: 80.9 kg

DRUGS (2)
  1. LEVOTHYROXINE 100 MCG [Suspect]
     Active Substance: LEVOTHYROXINE
     Indication: URTICARIA
     Dates: start: 20151127, end: 20151205
  2. LEVOTHYROXINE 100 MCG [Suspect]
     Active Substance: LEVOTHYROXINE
     Indication: PRURITUS
     Dates: start: 20151127, end: 20151205

REACTIONS (3)
  - Drug hypersensitivity [None]
  - Pruritus [None]
  - Urticaria [None]

NARRATIVE: CASE EVENT DATE: 20151127
